FAERS Safety Report 11292618 (Version 1)
Quarter: 2015Q2

REPORT INFORMATION
  Report Type: Spontaneous
  Country: US (occurrence: None)
  Receive Date: 20150623
  Receipt Date: 20150623
  Transmission Date: 20150821
  Serious: Yes (Other)
  Sender: FDA-Public Use
  Company Number: RB-76643-2015

PATIENT
  Age: 75 Year
  Sex: Female

DRUGS (3)
  1. DEXTROMETHORPHAN W/GUAIFENESIN 1200 MG (RB (RECKITT BENCKISER)) [Suspect]
     Active Substance: DEXTROMETHORPHAN\GUAIFENESIN
     Indication: RESPIRATORY TRACT CONGESTION
     Dosage: PATIENT TOOK LAST ON 22-APR-2015 AT 01:00 PM. UNKNOWN)
     Dates: start: 20150422, end: 20150422
  2. DEXTROMETHORPHAN W/GUAIFENESIN 1200 MG (RB (RECKITT BENCKISER)) [Suspect]
     Active Substance: DEXTROMETHORPHAN\GUAIFENESIN
     Indication: NASAL CONGESTION
     Dosage: PATIENT TOOK LAST ON 22-APR-2015 AT 01:00 PM. UNKNOWN)
     Dates: start: 20150422, end: 20150422
  3. DEXTROMETHORPHAN W/GUAIFENESIN 1200 MG (RB (RECKITT BENCKISER)) [Suspect]
     Active Substance: DEXTROMETHORPHAN\GUAIFENESIN
     Indication: SINUS CONGESTION
     Dosage: PATIENT TOOK LAST ON 22-APR-2015 AT 01:00 PM. UNKNOWN)
     Dates: start: 20150422, end: 20150422

REACTIONS (2)
  - Feeling abnormal [None]
  - Confusional state [None]

NARRATIVE: CASE EVENT DATE: 20150422
